FAERS Safety Report 9190305 (Version 2)
Quarter: 2013Q2

REPORT INFORMATION
  Report Type: Report from Study
  Country: IT (occurrence: IT)
  Receive Date: 20130326
  Receipt Date: 20130410
  Transmission Date: 20140414
  Serious: Yes (Life-Threatening, Hospitalization)
  Sender: FDA-Public Use
  Company Number: IT-BRISTOL-MYERS SQUIBB COMPANY-18704130

PATIENT
  Age: 60 Year
  Sex: Female

DRUGS (3)
  1. CETUXIMAB [Suspect]
     Indication: CERVIX CARCINOMA
     Route: 042
     Dates: start: 20120925, end: 20121227
  2. CARBOPLATIN [Suspect]
     Indication: CERVIX CARCINOMA
     Route: 042
     Dates: start: 20120925, end: 20121227
  3. PACLITAXEL [Suspect]
     Indication: CERVIX CARCINOMA
     Route: 042
     Dates: start: 20120925, end: 20121227

REACTIONS (1)
  - Thrombocytopenia [Not Recovered/Not Resolved]
